FAERS Safety Report 6771124-9 (Version None)
Quarter: 2010Q2

REPORT INFORMATION
  Report Type: 
  Country: None (occurrence: None)
  Receive Date: 20100616
  Receipt Date: 20100608
  Transmission Date: 20101027
  Serious: Yes (Other)
  Sender: FDA-Public Use
  Company Number: PH-JNJFOC-20100603167

PATIENT
  Age: 81 Year
  Sex: Female

DRUGS (4)
  1. DOLCET [Suspect]
     Indication: MUSCULOSKELETAL STIFFNESS
     Route: 048
  2. DOLCET [Suspect]
     Indication: MUSCLE SPASMS
     Route: 048
  3. BACLOFEN [Suspect]
     Indication: MUSCULOSKELETAL STIFFNESS
     Route: 065
  4. BACLOFEN [Suspect]
     Indication: MUSCLE SPASMS
     Route: 065

REACTIONS (3)
  - DEPRESSED LEVEL OF CONSCIOUSNESS [None]
  - STUPOR [None]
  - UNRESPONSIVE TO STIMULI [None]
